FAERS Safety Report 9869343 (Version 3)
Quarter: 2014Q1

REPORT INFORMATION
  Report Type: Spontaneous
  Country: JP (occurrence: JP)
  Receive Date: 20140205
  Receipt Date: 20140210
  Transmission Date: 20141002
  Serious: Yes (Death)
  Sender: FDA-Public Use
  Company Number: JP-JNJFOC-20131209117

PATIENT
  Age: 6 Decade
  Sex: Female

DRUGS (3)
  1. TRAMCET [Suspect]
     Indication: PAIN
     Dosage: 4 PER DAY
     Route: 048
     Dates: start: 20131216
  2. TRAMCET [Suspect]
     Indication: PAIN
     Dosage: 1 PER 1 DAY
     Route: 048
     Dates: start: 201312, end: 201312
  3. CELECOXIB [Concomitant]
     Route: 048

REACTIONS (2)
  - Neoplasm malignant [Fatal]
  - Dizziness [Not Recovered/Not Resolved]
